FAERS Safety Report 20610444 (Version 1)
Quarter: 2022Q1

REPORT INFORMATION
  Report Type: Spontaneous
  Country: US (occurrence: US)
  Receive Date: 20220318
  Receipt Date: 20220318
  Transmission Date: 20220423
  Serious: No
  Sender: FDA-Public Use
  Company Number: US-LUPIN PHARMACEUTICALS INC.-2022-03562

PATIENT
  Age: 48 Year
  Sex: Female

DRUGS (5)
  1. OXYCODONE [Suspect]
     Active Substance: OXYCODONE
     Indication: Bone pain
     Dosage: UNK (IMMEDIATE-RELEASE; DISCONTINUED AFTER TWO DOSES)
     Route: 065
  2. DOXORUBICIN [Concomitant]
     Active Substance: DOXORUBICIN
     Indication: Invasive ductal breast carcinoma
     Dosage: UNK EVERY 2 WEEKS (RECEIVED 4 TREATMENT CYCLES)
     Route: 065
  3. CYCLOPHOSPHAMIDE [Concomitant]
     Active Substance: CYCLOPHOSPHAMIDE
     Indication: Invasive ductal breast carcinoma
     Dosage: UNK EVERY 2 WEEKS (RECEIVED 4 TREATMENT CYCLES)
     Route: 065
  4. PACLITAXEL [Concomitant]
     Active Substance: PACLITAXEL
     Indication: Invasive ductal breast carcinoma
     Dosage: UNK EVERY WEEK
     Route: 065
  5. PEGFILGRASTIM [Concomitant]
     Active Substance: PEGFILGRASTIM
     Indication: Product used for unknown indication
     Dosage: 6 MG (27 HOURS AFTER COMPLETION OF EACH DOSE-DENSE DOXORUBICIN AND CYCLOPHOSPHAMIDE INFUSION)
     Route: 065

REACTIONS (1)
  - Constipation [Unknown]
